FAERS Safety Report 6021426-9 (Version None)
Quarter: 2008Q4

REPORT INFORMATION
  Report Type: 
  Country: None (occurrence: None)
  Receive Date: 20081229
  Receipt Date: 20081222
  Transmission Date: 20090506
  Serious: Yes (Hospitalization, Other)
  Sender: FDA-Public Use
  Company Number: D0059993A

PATIENT
  Sex: Female
  Weight: 50 kg

DRUGS (8)
  1. ACYCLOVIR [Suspect]
     Dosage: 250MG THREE TIMES PER DAY
     Route: 042
     Dates: start: 20081014, end: 20081021
  2. CLINDAMYCIN [Concomitant]
     Dosage: 600MG THREE TIMES PER DAY
     Route: 042
     Dates: start: 20081014, end: 20081017
  3. ESBERITOX [Concomitant]
     Route: 048
     Dates: start: 19880101
  4. FRAXIPARIN [Concomitant]
     Indication: THROMBOSIS PROPHYLAXIS
     Dosage: 2850IU PER DAY
     Route: 058
     Dates: start: 20081015, end: 20081021
  5. KALINOR [Concomitant]
     Dosage: 1UNIT PER DAY
     Route: 048
     Dates: start: 20081016, end: 20081020
  6. PARACETAMOL [Concomitant]
     Dosage: 500MG TWICE PER DAY
     Route: 048
     Dates: start: 20081014, end: 20081014
  7. SOBELIN [Concomitant]
     Dosage: 300MG THREE TIMES PER DAY
     Route: 048
     Dates: start: 20081017, end: 20081020
  8. TALVOSILEN [Concomitant]
     Dosage: 1UNIT THREE TIMES PER DAY
     Route: 048
     Dates: start: 20081015, end: 20081021

REACTIONS (1)
  - AGRANULOCYTOSIS [None]
